FAERS Safety Report 10071602 (Version 1)
Quarter: 2014Q2

REPORT INFORMATION
  Report Type: Spontaneous
  Country: TW (occurrence: TW)
  Receive Date: 20140410
  Receipt Date: 20140410
  Transmission Date: 20141212
  Serious: Yes (Other)
  Sender: FDA-Public Use
  Company Number: TW-MYLANLABS-2014S1007551

PATIENT
  Age: 61 Year
  Sex: Female

DRUGS (4)
  1. AMIODARONE [Suspect]
     Indication: VENTRICULAR EXTRASYSTOLES
     Dosage: 300 MG
     Route: 040
  2. AMIODARONE [Suspect]
     Indication: VENTRICULAR EXTRASYSTOLES
     Dosage: 900 MG/DAY ADMINISTERED AS AN IV DRIP
     Route: 042
  3. DIGOXIN [Suspect]
     Indication: ATRIAL FIBRILLATION
     Route: 065
  4. DIGOXIN [Suspect]
     Indication: CARDIAC FAILURE
     Route: 065

REACTIONS (1)
  - Torsade de pointes [Recovered/Resolved]
